FAERS Safety Report 15042879 (Version 2)
Quarter: 2018Q3

REPORT INFORMATION
  Report Type: Spontaneous
  Country: CN (occurrence: CN)
  Receive Date: 20180621
  Receipt Date: 20180921
  Transmission Date: 20181010
  Serious: Yes (Death, Other)
  Sender: FDA-Public Use
  Company Number: CN-ASTELLAS-2018US027635

PATIENT
  Age: 42 Year
  Sex: Male

DRUGS (16)
  1. PROGRAF [Suspect]
     Active Substance: TACROLIMUS\TACROLIMUS ANHYDROUS
     Dosage: 1.5 MG, TWICE DAILY (USE SINGLY/ONE TIME)
     Route: 065
     Dates: start: 20150724, end: 20150724
  2. CELLCEPT [Concomitant]
     Active Substance: MYCOPHENOLATE MOFETIL\MYCOPHENOLATE MOFETIL HYDROCHLORIDE
     Indication: LIVER TRANSPLANT
     Dosage: 2 UNK, EVERY 12 HOURS
     Route: 065
     Dates: end: 20150724
  3. SIMULECT [Concomitant]
     Active Substance: BASILIXIMAB
     Dosage: UNK UNK, UNKNOWN FREQ. (1 VIAL ON DAY 1 AND DAY 4)
     Route: 065
     Dates: start: 20150407, end: 20150407
  4. PROGRAF [Suspect]
     Active Substance: TACROLIMUS\TACROLIMUS ANHYDROUS
     Indication: LIVER TRANSPLANT
     Route: 065
     Dates: end: 20150608
  5. CELLCEPT [Concomitant]
     Active Substance: MYCOPHENOLATE MOFETIL\MYCOPHENOLATE MOFETIL HYDROCHLORIDE
     Dosage: UNK UNK, UNKNOWN FREQ.
     Route: 065
     Dates: start: 20150803
  6. PROGRAF [Suspect]
     Active Substance: TACROLIMUS\TACROLIMUS ANHYDROUS
     Route: 065
     Dates: start: 20150608, end: 201506
  7. PROGRAF [Suspect]
     Active Substance: TACROLIMUS\TACROLIMUS ANHYDROUS
     Route: 065
     Dates: start: 201506, end: 20150630
  8. CYCLOSPORIN A [Concomitant]
     Active Substance: CYCLOSPORINE
     Indication: LIVER TRANSPLANT
     Dosage: UNK UNK, UNKNOWN FREQ.
     Route: 065
  9. METHYLPREDNISOLONE. [Concomitant]
     Active Substance: METHYLPREDNISOLONE
     Route: 065
  10. SIROLIMUS. [Concomitant]
     Active Substance: SIROLIMUS
     Dosage: UNK UNK, UNKNOWN FREQ.
     Route: 065
     Dates: start: 20150803
  11. METHYLPREDNISOLONE. [Concomitant]
     Active Substance: METHYLPREDNISOLONE
     Indication: LIVER TRANSPLANT
     Route: 065
  12. METHYLPREDNISOLONE. [Concomitant]
     Active Substance: METHYLPREDNISOLONE
     Dosage: UNK, UNKNOWN FREQ.
     Route: 065
     Dates: start: 20150803
  13. SIROLIMUS. [Concomitant]
     Active Substance: SIROLIMUS
     Indication: LIVER TRANSPLANT
     Dosage: UNK UNK, UNKNOWN FREQ.
     Route: 065
     Dates: start: 20150630, end: 20150724
  14. PREDNISONE. [Concomitant]
     Active Substance: PREDNISONE
     Indication: LIVER TRANSPLANT
     Dosage: UNK UNK, UNKNOWN FREQ.
     Route: 065
  15. SIMULECT [Concomitant]
     Active Substance: BASILIXIMAB
     Indication: LIVER TRANSPLANT
     Dosage: UNK UNK, UNKNOWN FREQ. (1 VIAL ON DAY 1)
     Route: 065
     Dates: start: 20150404, end: 20150404
  16. PROGRAF [Suspect]
     Active Substance: TACROLIMUS\TACROLIMUS ANHYDROUS
     Route: 065
     Dates: start: 201506, end: 201506

REACTIONS (9)
  - Infection [Fatal]
  - Cholestasis [Recovering/Resolving]
  - Pancreatitis acute [Recovered/Resolved]
  - Drug intolerance [Recovering/Resolving]
  - Hepatocellular injury [Unknown]
  - Abdominal abscess [Recovered/Resolved]
  - Jaundice [Unknown]
  - Blood bilirubin increased [Unknown]
  - Transplant rejection [Unknown]
